FAERS Safety Report 24098485 (Version 1)
Quarter: 2024Q3

REPORT INFORMATION
  Report Type: Spontaneous
  Country: ZA (occurrence: None)
  Receive Date: 20240716
  Receipt Date: 20240716
  Transmission Date: 20241017
  Serious: Yes (Other)
  Sender: ASTRAZENECA
  Company Number: 2024A155876

PATIENT
  Age: 72 Year
  Sex: Female

DRUGS (5)
  1. BUDESONIDE\FORMOTEROL [Suspect]
     Active Substance: BUDESONIDE\FORMOTEROL
     Indication: Asthma
     Dosage: 60 DOSE 160/4.5 MCG, UNKNOWN. UNKNOWN
     Route: 055
  2. ROSUVASTATIN CALCIUM [Concomitant]
     Active Substance: ROSUVASTATIN CALCIUM
     Indication: Blood cholesterol
     Route: 048
  3. CIPALAT XR [Concomitant]
     Indication: Hypertension
     Route: 048
  4. HYDROCHLOROTHIAZIDE\VALSARTAN [Concomitant]
     Active Substance: HYDROCHLOROTHIAZIDE\VALSARTAN
     Indication: Hypertension
     Dosage: 160/12.5 MG
     Route: 048
  5. ISOSORBIDE DINITRATE 5 KIARA [Concomitant]
     Indication: Angina pectoris
     Route: 048

REACTIONS (3)
  - Porphyria [Unknown]
  - Visual impairment [Unknown]
  - Paraesthesia [Unknown]
